FAERS Safety Report 7338960 (Version 4)
Quarter: 2012Q4

REPORT INFORMATION
  Report Type: 
  Country: UA (occurrence: US)
  Receive Date: 20100331
  Receipt Date: 20121213
  Transmission Date: 20130627
  Serious: Yes (Other)
  Sender: FDA-Public Use
  Company Number: US-BAYER-201017274NA

PATIENT
  Age: 53 Year
  Sex: Male
  Weight: 62.13 kg

DRUGS (26)
  1. MAGNEVIST [Suspect]
     Indication: NUCLEAR MAGNETIC RESONANCE IMAGING ABDOMINAL ABNORMAL
     Dates: start: 20060714, end: 20060714
  2. MAGNEVIST [Suspect]
     Indication: NUCLEAR MAGNETIC RESONANCE IMAGING
     Dosage: UNK
     Dates: start: 20060808, end: 20060808
  3. OMNISCAN [Suspect]
     Indication: NUCLEAR MAGNETIC RESONANCE IMAGING
     Dosage: 20 ml, ONCE
     Dates: start: 20060617, end: 20060617
  4. OMNISCAN [Suspect]
     Indication: MRI
  5. PROCARDIA XL [Concomitant]
     Dosage: 90 BID
  6. EPO [Concomitant]
     Dosage: PER PROTOCOL
  7. HOLDIRON [Concomitant]
     Dosage: PER PROTOCOL
  8. HEPARIN [Concomitant]
     Dosage: 1000/500
  9. ASA [Concomitant]
     Route: 048
  10. KALETRA [Concomitant]
     Dosage: 2 TABLETS EVERY 12 HOURS
  11. VIREASE [Concomitant]
  12. STAVUDINE [Concomitant]
     Route: 048
  13. TENOFOVIR [Concomitant]
     Dosage: 300 MG Q 7 DAYS
  14. VITAMIN B COMPLEX WITH VITAMIN C [Concomitant]
     Route: 048
  15. PREDNISONE [Concomitant]
     Dates: start: 20060803
  16. ALLOPURINOL [Concomitant]
     Route: 048
  17. NEPHRO-VITE [VITAMINS NOS] [Concomitant]
     Dosage: WITH MEALS
  18. PHOSLO [Concomitant]
  19. DOCUSATE [Concomitant]
  20. COLCHICINE [Concomitant]
  21. IRON [Concomitant]
  22. FOSRENOL [Concomitant]
     Dosage: 500 mg, UNK
  23. SENSIPAR [Concomitant]
     Dosage: 60 mg, UNK
  24. CALCITRIOL [Concomitant]
     Dosage: 0.25 mg, UNK
  25. LISINOPRIL [Concomitant]
     Dosage: 30 mg, UNK
  26. METOPROLOL [Concomitant]
     Dosage: 500 mg, UNK

REACTIONS (16)
  - Nephrogenic systemic fibrosis [Unknown]
  - Arthralgia [Unknown]
  - Joint swelling [Unknown]
  - Abasia [Unknown]
  - Pain in extremity [Unknown]
  - Skin tightness [Unknown]
  - Skin hypertrophy [Unknown]
  - Skin induration [Unknown]
  - Arthralgia [Unknown]
  - Skin hyperpigmentation [Unknown]
  - Joint contracture [Unknown]
  - Oedema peripheral [Unknown]
  - Pain in extremity [Unknown]
  - Joint range of motion decreased [Unknown]
  - Joint stiffness [Unknown]
  - Rash [Unknown]
